FAERS Safety Report 15931365 (Version 2)
Quarter: 2019Q1

REPORT INFORMATION
  Report Type: Report from Study
  Country: ES (occurrence: ES)
  Receive Date: 20190207
  Receipt Date: 20190221
  Transmission Date: 20190417
  Serious: Yes (Other)
  Sender: FDA-Public Use
  Company Number: ES-ROCHE-2256894

PATIENT

DRUGS (1)
  1. BEVACIZUMAB. [Suspect]
     Active Substance: BEVACIZUMAB
     Indication: BREAST CANCER METASTATIC
     Route: 065

REACTIONS (6)
  - Abdominal sepsis [Unknown]
  - Neurotoxicity [Unknown]
  - Neuropathy peripheral [Unknown]
  - Pain [Unknown]
  - Hypertension [Unknown]
  - Neutropenia [Unknown]
